FAERS Safety Report 10592336 (Version 1)
Quarter: 2014Q4

REPORT INFORMATION
  Report Type: Spontaneous
  Country: US (occurrence: None)
  Receive Date: 20141117
  Receipt Date: 20141117
  Transmission Date: 20150529
  Serious: Yes (Hospitalization, Other)
  Sender: FDA-Public Use
  Company Number: ADR-2014-02127

PATIENT
  Age: 50 Year
  Sex: Female

DRUGS (1)
  1. BACLOFEN INTRATHECAL [Suspect]
     Active Substance: BACLOFEN
     Indication: MUSCLE SPASTICITY

REACTIONS (5)
  - Dehydration [None]
  - Fall [None]
  - No therapeutic response [None]
  - Intervertebral disc protrusion [None]
  - Muscle spasticity [None]

NARRATIVE: CASE EVENT DATE: 20140101
